FAERS Safety Report 4543467-0 (Version None)
Quarter: 2005Q1

REPORT INFORMATION
  Report Type: 
  Country: None (occurrence: None)
  Receive Date: 20050103
  Receipt Date: 20041207
  Transmission Date: 20050727
  Serious: Yes (Life-Threatening, Other)
  Sender: FDA-Public Use
  Company Number: US-MERCK-0412USA00932

PATIENT
  Age: 40 Year
  Sex: Male

DRUGS (3)
  1. CANCIDAS [Suspect]
     Indication: INFECTION
     Route: 042
     Dates: start: 20041203, end: 20041201
  2. [THERAPY UNSPECIFIED] [Concomitant]
     Route: 065
  3. ANTIMICROBIAL (UNSPECIFIED) [Concomitant]
     Route: 065

REACTIONS (1)
  - LARYNGEAL OEDEMA [None]
